FAERS Safety Report 8253705-9 (Version None)
Quarter: 2012Q2

REPORT INFORMATION
  Report Type: 
  Country: None (occurrence: None)
  Receive Date: 20120402
  Receipt Date: 20120312
  Transmission Date: 20120825
  Serious: No
  Sender: FDA-Public Use
  Company Number: US-AMGEN-USASP2012016113

PATIENT
  Age: 55 Year
  Sex: Female

DRUGS (2)
  1. ENBREL [Suspect]
     Indication: PSORIATIC ARTHROPATHY
     Dosage: 50 MG, QWK
     Dates: start: 20120120, end: 20120225
  2. ANTIBIOTICS [Suspect]
     Dosage: UNK

REACTIONS (4)
  - SINUSITIS [None]
  - HEADACHE [None]
  - BRONCHITIS [None]
  - FATIGUE [None]
